FAERS Safety Report 20368342 (Version 1)
Quarter: 2022Q1

REPORT INFORMATION
  Report Type: Spontaneous
  Country: BR (occurrence: BR)
  Receive Date: 20220124
  Receipt Date: 20220124
  Transmission Date: 20220423
  Serious: Yes (Hospitalization, Other)
  Sender: FDA-Public Use
  Company Number: BR-AUROBINDO-AUR-APL-2022-001711

PATIENT
  Age: 70 Year
  Sex: Male

DRUGS (1)
  1. BELEODAQ [Suspect]
     Active Substance: BELINOSTAT
     Indication: Peripheral T-cell lymphoma unspecified
     Dosage: 500 MILLIGRAM
     Route: 065

REACTIONS (1)
  - Disease progression [Unknown]
